FAERS Safety Report 7557497-8 (Version None)
Quarter: 2011Q2

REPORT INFORMATION
  Report Type: 
  Country: None (occurrence: None)
  Receive Date: 20110620
  Receipt Date: 20110616
  Transmission Date: 20111010
  Serious: Yes (Hospitalization, Other)
  Sender: FDA-Public Use
  Company Number: US-PFIZER INC-2006062874

PATIENT
  Sex: Female
  Weight: 112 kg

DRUGS (10)
  1. SUNITINIB MALATE [Suspect]
     Dosage: 50 MG, FREQUENCY: 1/DAY, INTERVAL: 4/2SCHEDULE
     Route: 048
     Dates: start: 20060412, end: 20060509
  2. SUNITINIB MALATE [Suspect]
     Dosage: 37.5 MG, FREQUENCY: 1/DAY, INTERVAL: 4/2SCHEDULE
     Route: 048
     Dates: start: 20060705, end: 20060801
  3. PAROXETINE [Concomitant]
     Indication: DEPRESSION
     Dosage: UNK
     Route: 048
     Dates: start: 20011001
  4. ACETYLSALICYLIC ACID [Concomitant]
     Indication: PAIN
     Dosage: UNK
     Route: 048
     Dates: start: 20050101
  5. MAALOX [Concomitant]
     Indication: GASTROOESOPHAGEAL REFLUX DISEASE
     Dosage: UNK
     Route: 048
     Dates: start: 20051116
  6. SUNITINIB MALATE [Suspect]
     Dosage: 50 MG, FREQUENCY: 1/DAY, INTERVAL: 4/2SCHEDULE
     Route: 048
     Dates: start: 20060524, end: 20060620
  7. SUNITINIB MALATE [Suspect]
     Indication: RENAL CELL CARCINOMA
     Dosage: 50 MG, CYCLIC EVERY DAY: 4 WEEKS ON/2 WEEKS OFF
     Route: 048
     Dates: start: 20051027
  8. ACETAMINOPHEN [Concomitant]
     Indication: ARTHRITIS
     Dosage: UNK
     Route: 048
     Dates: start: 20050201
  9. ACETYLSALICYLIC ACID [Concomitant]
  10. OMEPRAZOLE [Concomitant]
     Indication: GASTROOESOPHAGEAL REFLUX DISEASE
     Dosage: UNK
     Route: 048
     Dates: start: 20060101

REACTIONS (14)
  - HYPOKALAEMIA [None]
  - GASTROINTESTINAL HAEMORRHAGE [None]
  - ANAEMIA [None]
  - FATIGUE [None]
  - DEHYDRATION [None]
  - MENTAL STATUS CHANGES [None]
  - ABDOMINAL PAIN UPPER [None]
  - URINARY TRACT INFECTION [None]
  - DECREASED APPETITE [None]
  - GASTROINTESTINAL INFLAMMATION [None]
  - HYPOVOLAEMIA [None]
  - HYPONATRAEMIA [None]
  - HAEMOGLOBIN DECREASED [None]
  - PAIN [None]
